FAERS Safety Report 10046686 (Version 1)
Quarter: 2014Q1

REPORT INFORMATION
  Report Type: Spontaneous
  Country: JP (occurrence: JP)
  Receive Date: 20140331
  Receipt Date: 20140331
  Transmission Date: 20141002
  Serious: Yes (Hospitalization, Other)
  Sender: FDA-Public Use
  Company Number: JP-ROCHE-1371296

PATIENT
  Age: 68 Year
  Sex: Male
  Weight: 41 kg

DRUGS (7)
  1. XELODA [Suspect]
     Indication: COLON CANCER
     Route: 048
     Dates: start: 20131025, end: 20131101
  2. DECADRON [Concomitant]
     Route: 065
  3. GRANISETRON [Concomitant]
     Route: 042
  4. ELPLAT [Concomitant]
     Indication: COLON CANCER
     Route: 041
  5. PYDOXAL [Concomitant]
     Route: 048
  6. PARIET [Concomitant]
     Route: 048
  7. LOPEMIN [Concomitant]
     Route: 048

REACTIONS (3)
  - Hyperkalaemia [Recovering/Resolving]
  - Renal impairment [Recovering/Resolving]
  - Nausea [Unknown]
